FAERS Safety Report 23389102 (Version 4)
Quarter: 2024Q3

REPORT INFORMATION
  Report Type: Spontaneous
  Country: US (occurrence: US)
  Receive Date: 20240110
  Receipt Date: 20240809
  Transmission Date: 20241017
  Serious: Yes (Hospitalization)
  Sender: PFIZER
  Company Number: US-PFIZER INC-202400004617

PATIENT
  Age: 10 Year
  Sex: Male

DRUGS (2)
  1. OXBRYTA [Suspect]
     Active Substance: VOXELOTOR
     Dosage: 900 MG, DAILY
     Route: 048
     Dates: start: 20230203
  2. OXBRYTA [Suspect]
     Active Substance: VOXELOTOR
     Dosage: 900 MG, 1X/DAY (3 TABLETS, ONCE DAILY)
     Route: 048
     Dates: start: 20230203

REACTIONS (3)
  - Sickle cell anaemia with crisis [Unknown]
  - Weight decreased [Unknown]
  - Product dose omission in error [Unknown]
